FAERS Safety Report 14536335 (Version 1)
Quarter: 2018Q1

REPORT INFORMATION
  Report Type: Spontaneous
  Country: FR (occurrence: FR)
  Receive Date: 20180215
  Receipt Date: 20180215
  Transmission Date: 20180509
  Serious: Yes (Hospitalization)
  Sender: FDA-Public Use
  Company Number: FR-TEVA-2018-FR-855915

PATIENT
  Age: 77 Year
  Sex: Male
  Weight: 72 kg

DRUGS (7)
  1. GAVISCON [Concomitant]
     Active Substance: ALUMINUM HYDROXIDE\MAGNESIUM CARBONATE
  2. KARDEGIC [Suspect]
     Active Substance: ASPIRIN DL-LYSINE
     Indication: PRODUCT USED FOR UNKNOWN INDICATION
     Route: 048
     Dates: end: 20171019
  3. LOVENOX [Suspect]
     Active Substance: ENOXAPARIN SODIUM
     Indication: THROMBOSIS PROPHYLAXIS
     Route: 058
     Dates: start: 20171019, end: 20171030
  4. ALFUZOSINE (CHLORHYDRATE D^) [Concomitant]
  5. SIMBRINZA 10 MG/ML + 2 MG/ML, [Concomitant]
  6. GANFORT 300 MICROGRAMMES/ML + 5 MG/ML, [Concomitant]
  7. FLUVASTATINE BASE [Suspect]
     Active Substance: FLUVASTATIN SODIUM
     Indication: DYSLIPIDAEMIA
     Route: 048
     Dates: end: 20171110

REACTIONS (1)
  - Cerebral haematoma [Recovering/Resolving]

NARRATIVE: CASE EVENT DATE: 20171018
